FAERS Safety Report 9702209 (Version 1)
Quarter: 2013Q4

REPORT INFORMATION
  Report Type: Spontaneous
  Country: AR (occurrence: AR)
  Receive Date: 20131121
  Receipt Date: 20131121
  Transmission Date: 20140711
  Serious: Yes (Other)
  Sender: FDA-Public Use
  Company Number: PHHY2013AR133655

PATIENT
  Sex: Male

DRUGS (3)
  1. LIORESAL [Suspect]
     Indication: MUSCLE SPASTICITY
     Dosage: 5 DF/DAY
     Route: 048
     Dates: start: 2008
  2. TEGRETOL [Suspect]
     Indication: CONVULSION
     Dosage: 3 DF/DAY
     Route: 048
  3. LUMINAL [Concomitant]
     Dosage: 1 DF/DAY
     Route: 048

REACTIONS (2)
  - Convulsion [Unknown]
  - Musculoskeletal stiffness [Unknown]
